FAERS Safety Report 17785697 (Version 5)
Quarter: 2021Q2

REPORT INFORMATION
  Report Type: Spontaneous
  Country: US (occurrence: US)
  Receive Date: 20200514
  Receipt Date: 20210407
  Transmission Date: 20210716
  Serious: Yes (Other)
  Sender: FDA-Public Use
  Company Number: US-GILEAD-2020-0467060

PATIENT
  Age: 53 Year
  Sex: Male
  Weight: 55.33 kg

DRUGS (26)
  1. EPZICOM [Concomitant]
     Active Substance: ABACAVIR SULFATE\LAMIVUDINE
  2. TRIUMEQ [Concomitant]
     Active Substance: ABACAVIR SULFATE\DOLUTEGRAVIR SODIUM\LAMIVUDINE
  3. ACYCLOVIR ABBOTT VIAL [Concomitant]
  4. FLUOXETIN [Concomitant]
     Active Substance: FLUOXETINE HYDROCHLORIDE
  5. PRAVASTATIN. [Concomitant]
     Active Substance: PRAVASTATIN
  6. ROSUVASTATIN. [Concomitant]
     Active Substance: ROSUVASTATIN
  7. FERROUS SULFATE. [Concomitant]
     Active Substance: FERROUS SULFATE
  8. VIREAD [Suspect]
     Active Substance: TENOFOVIR DISOPROXIL FUMARATE
     Indication: HIV INFECTION
     Dosage: UNK
     Route: 048
     Dates: start: 2010, end: 201204
  9. TRAZODONE [Concomitant]
     Active Substance: TRAZODONE HYDROCHLORIDE
  10. ZETIA [Concomitant]
     Active Substance: EZETIMIBE
  11. CIALIS [Concomitant]
     Active Substance: TADALAFIL
  12. VIREAD [Suspect]
     Active Substance: TENOFOVIR DISOPROXIL FUMARATE
     Dosage: UNK
     Route: 048
     Dates: start: 2002, end: 2019
  13. ATRIPLA [Suspect]
     Active Substance: EFAVIRENZ\EMTRICITABINE\TENOFOVIR DISOPROXIL FUMARATE
     Indication: HIV INFECTION
     Dosage: UNK
     Route: 048
     Dates: start: 2007, end: 2010
  14. ALENDRONATE [Concomitant]
     Active Substance: ALENDRONATE SODIUM
  15. SIMVASTATIN. [Concomitant]
     Active Substance: SIMVASTATIN
  16. ZOLPIDEM [Concomitant]
     Active Substance: ZOLPIDEM TARTRATE
  17. GABAPENTIN. [Concomitant]
     Active Substance: GABAPENTIN
  18. REYATAZ [Concomitant]
     Active Substance: ATAZANAVIR SULFATE
  19. NAPROXEN. [Concomitant]
     Active Substance: NAPROXEN
  20. NORVIR [Concomitant]
     Active Substance: RITONAVIR
  21. ALPRAZOLAM. [Concomitant]
     Active Substance: ALPRAZOLAM
  22. LUNESTA [Concomitant]
     Active Substance: ESZOPICLONE
  23. VIREAD [Suspect]
     Active Substance: TENOFOVIR DISOPROXIL FUMARATE
     Dosage: UNK
     Route: 048
     Dates: start: 200305
  24. TRUVADA [Suspect]
     Active Substance: EMTRICITABINE\TENOFOVIR DISOPROXIL FUMARATE
     Indication: HIV INFECTION
     Dosage: UNK
     Route: 048
     Dates: start: 2005, end: 2016
  25. VITAMIN D 2000 [Concomitant]
     Active Substance: VITAMIN D NOS
  26. EVOTAZ [Concomitant]
     Active Substance: ATAZANAVIR SULFATE\COBICISTAT

REACTIONS (11)
  - Rib fracture [Unknown]
  - Multiple fractures [Unknown]
  - Renal injury [Unknown]
  - Bone loss [Unknown]
  - Osteonecrosis [Unknown]
  - Bone density decreased [Unknown]
  - Osteoporosis [Not Recovered/Not Resolved]
  - Intervertebral disc degeneration [Not Recovered/Not Resolved]
  - Chronic kidney disease [Not Recovered/Not Resolved]
  - Skeletal injury [Unknown]
  - Renal failure [Not Recovered/Not Resolved]

NARRATIVE: CASE EVENT DATE: 20141229
